FAERS Safety Report 16296619 (Version 1)
Quarter: 2019Q2

REPORT INFORMATION
  Report Type: Spontaneous
  Country: US (occurrence: US)
  Receive Date: 20190509
  Receipt Date: 20190509
  Transmission Date: 20190711
  Serious: Yes (Other)
  Sender: FDA-Public Use
  Company Number: None

PATIENT
  Age: 78 Year
  Sex: Male
  Weight: 74.25 kg

DRUGS (2)
  1. VALSARTAN 90 MG [Suspect]
     Active Substance: VALSARTAN
     Indication: HYPERTENSION
  2. OCCASIONAL IBUPROFEN AS NEEDED FOR PAIN OR HEADACHE [Concomitant]

REACTIONS (2)
  - Vitiligo [None]
  - Recalled product [None]

NARRATIVE: CASE EVENT DATE: 20170809
